FAERS Safety Report 15819564 (Version 1)
Quarter: 2019Q1

REPORT INFORMATION
  Report Type: Report from Study
  Country: ES (occurrence: ES)
  Receive Date: 20190114
  Receipt Date: 20190114
  Transmission Date: 20190417
  Serious: Yes (Hospitalization)
  Sender: FDA-Public Use
  Company Number: ES-TEVA-2019-ES-998306

PATIENT
  Age: 93 Year
  Sex: Male

DRUGS (4)
  1. AMOXICILINA/CLAVULANICO [Concomitant]
     Dosage: 1GR/8H
     Route: 042
     Dates: start: 20180223, end: 20180226
  2. ENALAPRIL (2142A) [Suspect]
     Active Substance: ENALAPRIL
     Dosage: 5 MILLIGRAM DAILY;  DIA
     Route: 048
     Dates: start: 20180222, end: 20180223
  3. FUROSEMIDA (1615A) [Interacting]
     Active Substance: FUROSEMIDE
     Route: 042
     Dates: start: 20180220, end: 20180226
  4. EPLERENONA (2924A) [Interacting]
     Active Substance: EPLERENONE
     Dosage: 25 MILLIGRAM DAILY;
     Route: 048
     Dates: start: 20180220, end: 20180226

REACTIONS (2)
  - Drug interaction [Recovering/Resolving]
  - Acute kidney injury [Recovering/Resolving]

NARRATIVE: CASE EVENT DATE: 20180226
